FAERS Safety Report 8185862-7 (Version None)
Quarter: 2012Q1

REPORT INFORMATION
  Report Type: 
  Country: None (occurrence: None)
  Receive Date: 20120305
  Receipt Date: 20120222
  Transmission Date: 20120608
  Serious: No
  Sender: FDA-Public Use
  Company Number: JP-ASTRAZENECA-2012SE12060

PATIENT
  Age: 67 Year
  Sex: Male

DRUGS (2)
  1. AMBISOME [Suspect]
     Indication: FUNGAL INFECTION
     Dates: start: 20120130
  2. MEROPENEM [Suspect]
     Route: 042
     Dates: start: 20120209

REACTIONS (1)
  - PLATELET COUNT DECREASED [None]
